FAERS Safety Report 9256745 (Version 1)
Quarter: 2013Q2

REPORT INFORMATION
  Report Type: Spontaneous
  Country: IT (occurrence: IT)
  Receive Date: 20130426
  Receipt Date: 20130426
  Transmission Date: 20140414
  Serious: Yes (Hospitalization, Other)
  Sender: FDA-Public Use
  Company Number: IT-009507513-1304ITA015121

PATIENT
  Age: 53 Year
  Sex: Female
  Weight: 68 kg

DRUGS (17)
  1. REMERON [Suspect]
     Indication: DEPRESSION
     Dosage: 30 MG, QD
     Route: 048
     Dates: start: 20130103, end: 20130313
  2. REMERON [Suspect]
     Indication: PANIC DISORDER
  3. TOLEP [Suspect]
     Indication: DEPRESSION
     Dosage: 300 MG, QD
     Route: 048
     Dates: start: 19950206, end: 20130318
  4. TOLEP [Suspect]
     Indication: PANIC DISORDER
  5. LARGACTIL [Suspect]
     Indication: DEPRESSION
     Dosage: 50 MG, TOTAL
     Route: 030
     Dates: start: 20130319, end: 20130319
  6. LARGACTIL [Suspect]
     Indication: PANIC DISORDER
  7. CIPRALEX [Suspect]
     Indication: DEPRESSION
     Dosage: 10 MG, QD
     Route: 048
     Dates: start: 20130118, end: 20130319
  8. CIPRALEX [Suspect]
     Indication: PANIC DISORDER
  9. XERISTAR [Suspect]
     Indication: DEPRESSION
     Dosage: 60 MG, QD
     Route: 048
     Dates: start: 20130313, end: 20130317
  10. XERISTAR [Suspect]
     Indication: PANIC DISORDER
  11. SERENASE [Suspect]
     Indication: DEPRESSION
     Dosage: 5 MG TAKEN AS A SINGLE DOSE
     Route: 030
     Dates: start: 20130319, end: 20130319
  12. SERENASE [Suspect]
     Indication: PANIC DISORDER
  13. DOMINANS [Suspect]
     Indication: DEPRESSION
     Dosage: 10.5 MG, QD
     Route: 048
     Dates: start: 20130118, end: 20130321
  14. DOMINANS [Suspect]
     Indication: PANIC DISORDER
  15. LITHIUM CARBONATE [Suspect]
     Indication: DEPRESSION
     Dosage: 300 MG, QD
     Route: 048
     Dates: start: 20130313, end: 20130319
  16. LITHIUM CARBONATE [Suspect]
     Indication: PANIC DISORDER
  17. LAMOTRIGINE [Suspect]
     Indication: EPILEPSY
     Dosage: 100 MG, QD
     Route: 048
     Dates: start: 19950103

REACTIONS (6)
  - Coma [Recovered/Resolved]
  - Hyperthermia malignant [Recovered/Resolved]
  - Hypertonia [Recovered/Resolved]
  - Musculoskeletal stiffness [Recovered/Resolved]
  - Neuroleptic malignant syndrome [Recovered/Resolved]
  - Rhabdomyolysis [Recovered/Resolved]
